FAERS Safety Report 5313444-0 (Version None)
Quarter: 2007Q2

REPORT INFORMATION
  Report Type: 
  Country: None (occurrence: None)
  Receive Date: 20070501
  Receipt Date: 20070419
  Transmission Date: 20071010
  Serious: Yes (Disabling)
  Sender: FDA-Public Use
  Company Number: US-ROCHE-493754

PATIENT
  Age: 62 Year
  Sex: Female
  Weight: 63.5 kg

DRUGS (7)
  1. CAPECITABINE [Suspect]
     Dosage: DOSE REPORTED AS 3250 (UNITS AND FREQUENCY NOT REPORTED).
     Route: 065
     Dates: start: 20060105
  2. CAPECITABINE [Suspect]
     Dosage: 2500MG IS A REDUCED DOSE FROM 3250 (UNITS NOT REPORTED)
     Route: 065
  3. CAPECITABINE [Suspect]
     Dosage: 2000MG IS A DOSE REDUCTION FROM 2500MG.
     Route: 065
     Dates: end: 20061101
  4. BEVACIZUMAB [Suspect]
     Route: 042
     Dates: start: 20061115, end: 20070409
  5. BEVACIZUMAB [Suspect]
     Dosage: FREQUENCY NOT REPORTED.
     Route: 042
     Dates: start: 20060105, end: 20061101
  6. PACLITAXEL [Suspect]
     Dosage: DOSE REPORTED AS 174 (UNITS NOT REPORTED, FREQUENCY AND ROUTE NOT REPORTED).
     Route: 065
     Dates: start: 20061206, end: 20070403
  7. DOCETAXEL [Suspect]
     Dosage: DOSE REPORTED AS 139 (UNITS NOT REPORTED, FREQUENCY AND ROUTE NOT REPORTED)
     Route: 065
     Dates: start: 20061115, end: 20061206

REACTIONS (1)
  - HEPATIC CIRRHOSIS [None]
